FAERS Safety Report 23890835 (Version 2)
Quarter: 2024Q2

REPORT INFORMATION
  Report Type: Spontaneous
  Country: CN (occurrence: CN)
  Receive Date: 20240523
  Receipt Date: 20240529
  Transmission Date: 20240717
  Serious: Yes (Other)
  Sender: FDA-Public Use
  Company Number: CN-BRISTOL-MYERS SQUIBB COMPANY-2024-080480

PATIENT
  Age: 44 Year
  Sex: Female
  Weight: 43 kg

DRUGS (2)
  1. NIVOLUMAB [Suspect]
     Active Substance: NIVOLUMAB
     Indication: Gastric cancer
     Dosage: FREQ : USED ^ONCE^ AS A SINGLE DOSE?DRUG USE - TIMES: 1?DRUG USE - DAYS: 1
     Route: 041
     Dates: start: 20240313, end: 20240313
  2. GIMERACIL\OTERACIL\TEGAFUR [Suspect]
     Active Substance: GIMERACIL\OTERACIL POTASSIUM\TEGAFUR
     Indication: Gastric cancer
     Dosage: DRUG USE - TIMES: 1?DRUG USE - DAYS: 1
     Route: 048
     Dates: start: 20240313, end: 20240326

REACTIONS (2)
  - Myelosuppression [Recovering/Resolving]
  - Off label use [Unknown]

NARRATIVE: CASE EVENT DATE: 20240402
